FAERS Safety Report 4684311-0 (Version None)
Quarter: 2005Q2

REPORT INFORMATION
  Report Type: 
  Country: None (occurrence: None)
  Receive Date: 20050607
  Receipt Date: 20050527
  Transmission Date: 20051028
  Serious: Yes (Other)
  Sender: FDA-Public Use
  Company Number: 2005UW08300

PATIENT
  Age: 46 Year
  Sex: Female
  Weight: 63.5 kg

DRUGS (3)
  1. NEXIUM [Suspect]
     Indication: GASTROOESOPHAGEAL REFLUX DISEASE
     Route: 048
     Dates: start: 20030101
  2. ROBINOL [Concomitant]
  3. ZYRTEC [Concomitant]

REACTIONS (4)
  - CARCINOID TUMOUR OF THE STOMACH [None]
  - GASTRIC POLYPS [None]
  - INTESTINAL POLYP [None]
  - POLYP [None]
